FAERS Safety Report 24446778 (Version 1)
Quarter: 2024Q4

REPORT INFORMATION
  Report Type: Spontaneous
  Country: DE (occurrence: DE)
  Receive Date: 20241016
  Receipt Date: 20241016
  Transmission Date: 20250115
  Serious: Yes (Other)
  Sender: NOVARTIS
  Company Number: DE-SANDOZ-SDZ2024DE086573

PATIENT
  Age: 63 Year
  Sex: Female

DRUGS (1)
  1. TERBINAFINE HYDROCHLORIDE [Suspect]
     Active Substance: TERBINAFINE HYDROCHLORIDE
     Indication: Onychomycosis
     Dosage: UNK
     Route: 065

REACTIONS (8)
  - Pneumonitis [Unknown]
  - Breast mass [Unknown]
  - Skin mass [Unknown]
  - Splenomegaly [Unknown]
  - Facial pain [Unknown]
  - Oral pain [Unknown]
  - Fatigue [Unknown]
  - Hypoaesthesia [Unknown]
